FAERS Safety Report 16731898 (Version 1)
Quarter: 2019Q3

REPORT INFORMATION
  Report Type: Spontaneous
  Country: GB (occurrence: GB)
  Receive Date: 20190822
  Receipt Date: 20190822
  Transmission Date: 20191005
  Serious: Yes (Other)
  Sender: FDA-Public Use
  Company Number: GB-MYLANLABS-2019M1078316

PATIENT
  Sex: Female

DRUGS (2)
  1. ADRENALINE                         /00003901/ [Concomitant]
     Active Substance: EPINEPHRINE
     Indication: HYPERSENSITIVITY
     Dosage: UNK
     Route: 065
  2. BISOPROLOL [Suspect]
     Active Substance: BISOPROLOL
     Indication: ATRIAL TACHYCARDIA
     Dosage: UNK
     Route: 065

REACTIONS (7)
  - Lip swelling [Unknown]
  - Peripheral swelling [Unknown]
  - Hypersensitivity [Unknown]
  - Dermatitis allergic [Unknown]
  - Swollen tongue [Unknown]
  - Injury [Unknown]
  - Anaphylactic reaction [Unknown]
